FAERS Safety Report 8413544-2 (Version None)
Quarter: 2012Q2

REPORT INFORMATION
  Report Type: 
  Country: None (occurrence: None)
  Receive Date: 20120605
  Receipt Date: 20120531
  Transmission Date: 20120825
  Serious: Yes (Hospitalization)
  Sender: FDA-Public Use
  Company Number: DE-GLAXOSMITHKLINE-A0980078A

PATIENT
  Age: 52 Year
  Sex: Female
  Weight: 70 kg

DRUGS (7)
  1. ALBUTEROL [Suspect]
     Indication: ASTHMA
     Dosage: .3MG PER DAY
  2. INVESTIGATIONAL DRUG [Suspect]
     Indication: RHEUMATOID ARTHRITIS
     Dosage: 10MG TWICE PER DAY
     Route: 048
     Dates: start: 20101029
  3. HYDROCHLOROTHIAZIDE [Concomitant]
     Indication: HYPERTENSION
     Dates: end: 20111027
  4. PREDNISOLONE [Suspect]
     Indication: RHEUMATOID ARTHRITIS
     Dosage: 12.5MG PER DAY
     Route: 048
     Dates: start: 20071012
  5. PANTOPRAZOLE [Concomitant]
     Indication: GASTRITIS
     Dates: start: 20081201
  6. BUDESONIDE [Concomitant]
     Indication: ASTHMA
  7. LEFLUNOMIDE [Suspect]
     Indication: RHEUMATOID ARTHRITIS
     Dosage: 20MG PER DAY
     Route: 048
     Dates: start: 20080526

REACTIONS (3)
  - CHILLS [None]
  - DYSPNOEA [None]
  - HYPERTENSION [None]
